FAERS Safety Report 8381781-1 (Version None)
Quarter: 2012Q2

REPORT INFORMATION
  Report Type: 
  Country: None (occurrence: None)
  Receive Date: 20120427
  Receipt Date: 20120418
  Transmission Date: 20120825
  Serious: Yes (Life-Threatening, Hospitalization, Disabling)
  Sender: FDA-Public Use
  Company Number: AEDEU201200213

PATIENT
  Age: 51 Year
  Sex: Male

DRUGS (4)
  1. FORAIR /00958002/ [Concomitant]
  2. PREDNISONE [Concomitant]
  3. SPIRIVA [Concomitant]
  4. PROLASTIN [Suspect]
     Indication: ALPHA-1 ANTI-TRYPSIN DEFICIENCY
     Dosage: 5 GM;QW;IV
     Route: 042
     Dates: start: 20080407

REACTIONS (2)
  - GLIOBLASTOMA [None]
  - CONVULSION [None]
